FAERS Safety Report 5821095-4 (Version None)
Quarter: 2008Q3

REPORT INFORMATION
  Report Type: 
  Country: None (occurrence: None)
  Receive Date: 20080724
  Receipt Date: 20080717
  Transmission Date: 20090109
  Serious: Yes (Hospitalization)
  Sender: FDA-Public Use
  Company Number: IT-WATSON-2008-04317

PATIENT
  Age: 57 Year
  Sex: Male

DRUGS (1)
  1. METHYLPREDNISOLONE ACETATE [Suspect]
     Indication: MULTIPLE SCLEROSIS
     Dosage: 1 G, DAILY
     Route: 042

REACTIONS (2)
  - SCLERODERMA RENAL CRISIS [None]
  - SYSTEMIC SCLEROSIS [None]
